FAERS Safety Report 4903635-2 (Version None)
Quarter: 2006Q1

REPORT INFORMATION
  Report Type: 
  Country: None (occurrence: None)
  Receive Date: 20060203
  Receipt Date: 20060126
  Transmission Date: 20060701
  Serious: Yes (Hospitalization)
  Sender: FDA-Public Use
  Company Number: T05-JPN-05755-01

PATIENT
  Age: 68 Year
  Sex: Male
  Weight: 50 kg

DRUGS (5)
  1. MEMANTINE HCL [Suspect]
     Indication: DEMENTIA ALZHEIMER'S TYPE
     Dosage: 20 MG QD PO
     Route: 048
     Dates: start: 20050928, end: 20051219
  2. HYDROXYZINE [Concomitant]
  3. ZOLPIDEM TARTRATE [Concomitant]
  4. METOPROLOL TARTRATE [Concomitant]
  5. TRAZODONE HCL [Concomitant]

REACTIONS (8)
  - ABASIA [None]
  - ANOREXIA [None]
  - B-CELL LYMPHOMA [None]
  - COUGH [None]
  - FALL [None]
  - HUMERUS FRACTURE [None]
  - PYREXIA [None]
  - WEIGHT DECREASED [None]
